FAERS Safety Report 18312923 (Version 1)
Quarter: 2020Q3

REPORT INFORMATION
  Report Type: Spontaneous
  Country: US (occurrence: US)
  Receive Date: 20200925
  Receipt Date: 20200925
  Transmission Date: 20201103
  Serious: No
  Sender: FDA-Public Use
  Company Number: None

PATIENT
  Age: 60 Year
  Sex: Female
  Weight: 99.9 kg

DRUGS (13)
  1. ALBUTEROL. [Concomitant]
     Active Substance: ALBUTEROL
  2. MECLIZINE [Suspect]
     Active Substance: MECLIZINE HYDROCHLORIDE
     Indication: VERTIGO
     Dosage: ?          QUANTITY:1 TABLET(S);?
     Route: 048
  3. LISPRO [Concomitant]
     Active Substance: INSULIN LISPRO
  4. OMEPRAZOLE. [Concomitant]
     Active Substance: OMEPRAZOLE
  5. AMLODIPINE [Concomitant]
     Active Substance: AMLODIPINE BESYLATE
  6. ATORVASTIN [Concomitant]
     Active Substance: ATORVASTATIN
  7. LANTUS [Concomitant]
     Active Substance: INSULIN GLARGINE
  8. METOPROLOL. [Concomitant]
     Active Substance: METOPROLOL
  9. FLUTICASONE. [Concomitant]
     Active Substance: FLUTICASONE
  10. ALENDRONATE [Concomitant]
     Active Substance: ALENDRONATE SODIUM
  11. PLAVIX [Concomitant]
     Active Substance: CLOPIDOGREL BISULFATE
  12. ASPRIN [Concomitant]
     Active Substance: ASPIRIN
  13. POTASSIUM [Concomitant]
     Active Substance: POTASSIUM

REACTIONS (1)
  - Blood glucose increased [None]

NARRATIVE: CASE EVENT DATE: 20200921
